FAERS Safety Report 13665892 (Version 1)
Quarter: 2017Q2

REPORT INFORMATION
  Report Type: Spontaneous
  Country: US (occurrence: US)
  Receive Date: 20170619
  Receipt Date: 20170619
  Transmission Date: 20170830
  Serious: Yes (Death, Other)
  Sender: FDA-Public Use
  Company Number: US-MYLANLABS-2017M1036566

PATIENT

DRUGS (2)
  1. ALPRAZOLAM. [Suspect]
     Active Substance: ALPRAZOLAM
     Indication: DRUG USE DISORDER
     Route: 065
  2. U 47700 [Suspect]
     Active Substance: U-47700
     Indication: DRUG USE DISORDER
     Route: 065

REACTIONS (7)
  - Cardiomegaly [None]
  - Splenomegaly [None]
  - Respiratory arrest [None]
  - Hepatomegaly [None]
  - Pulmonary oedema [None]
  - Death [Fatal]
  - Drug use disorder [Fatal]
